FAERS Safety Report 16459137 (Version 1)
Quarter: 2019Q2

REPORT INFORMATION
  Report Type: Spontaneous
  Country: IT (occurrence: IT)
  Receive Date: 20190620
  Receipt Date: 20190620
  Transmission Date: 20190711
  Serious: Yes (Hospitalization, Other)
  Sender: FDA-Public Use
  Company Number: IT-MYLANLABS-2019M1056997

PATIENT
  Age: 74 Year
  Sex: Male

DRUGS (2)
  1. LEVOFLOXACIN. [Suspect]
     Active Substance: LEVOFLOXACIN
     Indication: BURSITIS
     Dosage: 2 DOSAGE FORM, QD
     Route: 048
     Dates: start: 20181122, end: 20181129
  2. BACTRIM [Suspect]
     Active Substance: SULFAMETHOXAZOLE\TRIMETHOPRIM
     Indication: BURSITIS
     Dosage: 1 DOSAGE FORM, QD
     Route: 048
     Dates: start: 20181122, end: 20181129

REACTIONS (2)
  - Renal failure [Unknown]
  - Cardiometabolic syndrome [Unknown]

NARRATIVE: CASE EVENT DATE: 20181202
